FAERS Safety Report 9852339 (Version 1)
Quarter: 2013Q4

REPORT INFORMATION
  Report Type: Spontaneous
  Country: US (occurrence: None)
  Receive Date: 20131226
  Receipt Date: 20131226
  Transmission Date: 20140711
  Serious: Yes (Hospitalization)
  Sender: FDA-Public Use
  Company Number: PHEH2013US016346

PATIENT
  Age: 83 Year
  Sex: Female

DRUGS (1)
  1. AFINITOR [Suspect]
     Indication: BREAST CANCER

REACTIONS (9)
  - Arthralgia [None]
  - Bacterial infection [None]
  - Dysphonia [None]
  - Constipation [None]
  - Dyspnoea [None]
  - Fatigue [None]
  - Decreased appetite [None]
  - Dysgeusia [None]
  - Epistaxis [None]
